FAERS Safety Report 17285369 (Version 1)
Quarter: 2020Q1

REPORT INFORMATION
  Report Type: Spontaneous
  Country: US (occurrence: US)
  Receive Date: 20200117
  Receipt Date: 20200117
  Transmission Date: 20200409
  Serious: No
  Sender: FDA-Public Use
  Company Number: US-SA-2020SA011072

PATIENT

DRUGS (1)
  1. ALLEGRA [Suspect]
     Active Substance: FEXOFENADINE HYDROCHLORIDE
     Indication: HYPERSENSITIVITY
     Dosage: 0.5 DF, UNK
     Route: 065

REACTIONS (8)
  - Pain [Recovered/Resolved]
  - Withdrawal syndrome [Unknown]
  - Feeling abnormal [Unknown]
  - Dizziness [Unknown]
  - Pruritus [Unknown]
  - Back pain [Recovered/Resolved]
  - Palpitations [Unknown]
  - Vertigo [Unknown]
